FAERS Safety Report 11455581 (Version 1)
Quarter: 2015Q3

REPORT INFORMATION
  Report Type: Spontaneous
  Country: US (occurrence: US)
  Receive Date: 20150903
  Receipt Date: 20150903
  Transmission Date: 20151125
  Serious: No
  Sender: FDA-Public Use
  Company Number: US-BEH-2014043965

PATIENT
  Sex: Female
  Weight: 99 kg

DRUGS (35)
  1. COZAAR [Concomitant]
     Active Substance: LOSARTAN POTASSIUM
  2. BENZONATATE. [Concomitant]
     Active Substance: BENZONATATE
  3. PROAIR HFA [Concomitant]
     Active Substance: ALBUTEROL SULFATE
  4. LYRICA [Concomitant]
     Active Substance: PREGABALIN
  5. PROMETHAZINE [Concomitant]
     Active Substance: PROMETHAZINE\PROMETHAZINE HYDROCHLORIDE
  6. LISINOPRIL. [Concomitant]
     Active Substance: LISINOPRIL
  7. ACETAMINOPHEN. [Concomitant]
     Active Substance: ACETAMINOPHEN
  8. HEPARIN [Concomitant]
     Active Substance: HEPARIN SODIUM
  9. NEXIUM [Concomitant]
     Active Substance: ESOMEPRAZOLE MAGNESIUM
  10. CRESTOR [Concomitant]
     Active Substance: ROSUVASTATIN CALCIUM
  11. ALL OTHER THERAPEUTIC PRODUCTS [Concomitant]
     Active Substance: UNSPECIFIED INGREDIENT
  12. METHYLPREDNISOLONE. [Concomitant]
     Active Substance: METHYLPREDNISOLONE
  13. TRIAMCINOLONE [Concomitant]
     Active Substance: TRIAMCINOLONE
  14. ADVAIR HFA [Concomitant]
     Active Substance: FLUTICASONE PROPIONATE\SALMETEROL XINAFOATE
  15. MECLIZINE [Concomitant]
     Active Substance: MECLIZINE\MECLIZINE HYDROCHLORIDE
  16. OXYGEN. [Concomitant]
     Active Substance: OXYGEN
  17. SPIRIVA [Concomitant]
     Active Substance: TIOTROPIUM BROMIDE MONOHYDRATE
  18. ZEMAIRA [Suspect]
     Active Substance: .ALPHA.1-PROTEINASE INHIBITOR HUMAN
     Indication: ALPHA-1 ANTI-TRYPSIN DEFICIENCY
     Dosage: MAX RATE 0.08 ML/KG/MIN (8 ML/MIN)
     Route: 042
  19. SODIUM CHLORIDE. [Concomitant]
     Active Substance: SODIUM CHLORIDE
  20. HUMALOG [Concomitant]
     Active Substance: INSULIN LISPRO
  21. LANTUS [Concomitant]
     Active Substance: INSULIN GLARGINE
  22. NAPROXEN. [Concomitant]
     Active Substance: NAPROXEN
  23. EFFEXOR [Concomitant]
     Active Substance: VENLAFAXINE HYDROCHLORIDE
  24. GABAPENTIN. [Concomitant]
     Active Substance: GABAPENTIN
  25. SUMATRIPTAN. [Concomitant]
     Active Substance: SUMATRIPTAN
  26. DIPHENHYDRAMINE. [Concomitant]
     Active Substance: DIPHENHYDRAMINE
  27. LIDOCAINE. [Concomitant]
     Active Substance: LIDOCAINE
  28. LIDOCAINE/PRILOCAINE [Concomitant]
  29. EPIPEN [Concomitant]
     Active Substance: EPINEPHRINE
  30. ALL OTHER THERAPEUTIC PRODUCTS [Concomitant]
     Active Substance: UNSPECIFIED INGREDIENT
  31. BUTALB-APAP-CAFF [Concomitant]
  32. VITAMIN D [Concomitant]
     Active Substance: CHOLECALCIFEROL
  33. TYLENOL WITH CODEINE [Concomitant]
     Active Substance: ACETAMINOPHEN\CODEINE PHOSPHATE
  34. ALPRAZOLAM. [Concomitant]
     Active Substance: ALPRAZOLAM
  35. SEROQUEL [Concomitant]
     Active Substance: QUETIAPINE FUMARATE

REACTIONS (1)
  - Nausea [Unknown]
